FAERS Safety Report 9212197 (Version 1)
Quarter: 2013Q2

REPORT INFORMATION
  Report Type: Spontaneous
  Country: US (occurrence: US)
  Receive Date: 20130404
  Receipt Date: 20130404
  Transmission Date: 20140414
  Serious: Yes (Hospitalization)
  Sender: FDA-Public Use
  Company Number: US-B.I. PHARMACEUTICALS,INC./RIDGEFIELD-2013-BI-08914BP

PATIENT
  Age: 68 Year
  Sex: Female
  Weight: 92 kg

DRUGS (2)
  1. SPIRIVA [Suspect]
     Indication: CHRONIC OBSTRUCTIVE PULMONARY DISEASE
     Dosage: 18 MCG
     Route: 055
     Dates: start: 2007, end: 2007
  2. SPIRIVA [Suspect]
     Dosage: 18 MCG
     Route: 055
     Dates: start: 20130203

REACTIONS (11)
  - Pneumonia [Recovered/Resolved]
  - Bronchitis [Recovered/Resolved]
  - Dry mouth [Not Recovered/Not Resolved]
  - Local swelling [Not Recovered/Not Resolved]
  - Visual acuity reduced [Recovered/Resolved]
  - Weight increased [Not Recovered/Not Resolved]
  - Hypertension [Unknown]
  - Visual impairment [Recovered/Resolved]
  - Cough [Recovered/Resolved]
  - Oxygen saturation decreased [Recovered/Resolved]
  - Oedema peripheral [Unknown]
